FAERS Safety Report 9344549 (Version 1)
Quarter: 2013Q2

REPORT INFORMATION
  Report Type: Spontaneous
  Country: ES (occurrence: ES)
  Receive Date: 20130612
  Receipt Date: 20130612
  Transmission Date: 20140414
  Serious: Yes (Other)
  Sender: FDA-Public Use
  Company Number: ES-ACTAVIS-2013-10180

PATIENT
  Age: 39 Year
  Sex: Female

DRUGS (2)
  1. TACROLIMUS (UNKNOWN) [Suspect]
     Indication: IMMUNOSUPPRESSION
     Dosage: UNK
     Route: 065
  2. AZATHIOPRINE (UNKNOWN) [Suspect]
     Indication: IMMUNOSUPPRESSION
     Dosage: UNK
     Route: 065

REACTIONS (4)
  - Hypertensive crisis [Unknown]
  - Acute pulmonary oedema [Unknown]
  - Renal failure [Unknown]
  - Diarrhoea [Unknown]
